FAERS Safety Report 20948374 (Version 1)
Quarter: 2022Q2

REPORT INFORMATION
  Report Type: Spontaneous
  Country: FR (occurrence: FR)
  Receive Date: 20220611
  Receipt Date: 20220611
  Transmission Date: 20220721
  Serious: Yes (Hospitalization)
  Sender: FDA-Public Use
  Company Number: None

PATIENT
  Age: 69 Year
  Sex: Female
  Weight: 58 kg

DRUGS (13)
  1. DOXORUBICIN HYDROCHLORIDE [Suspect]
     Active Substance: DOXORUBICIN HYDROCHLORIDE
     Indication: Breast cancer
     Dosage: 100MG EVERY 21 DAYS,DURATION 64DAYS
     Route: 041
     Dates: start: 20181211, end: 20190213
  2. PACLITAXEL [Suspect]
     Active Substance: PACLITAXEL
     Indication: Breast cancer
     Dosage: 132MG EVERY 7 DAYS,DURATION 78DAYS
     Route: 041
     Dates: start: 20190306, end: 20190523
  3. EPIRUBICIN [Suspect]
     Active Substance: EPIRUBICIN
     Indication: Breast cancer
     Dosage: 20 MG SINGLE DOSE
     Route: 041
     Dates: start: 201811, end: 201811
  4. CYCLOPHOSPHAMIDE [Suspect]
     Active Substance: CYCLOPHOSPHAMIDE
     Indication: Breast cancer
     Dosage: 1000MG EVERY 21 DAYS, FREQUENCY TIME 21DAYS, DURATION 64DAYS
     Route: 041
     Dates: start: 20181211, end: 20190213
  5. TRASTUZUMAB [Concomitant]
     Active Substance: TRASTUZUMAB
     Indication: Breast cancer
     Dosage: 600 MG EVERY 21 D, TRASTUZUMAB ((MAMMAL/HAMSTER/CHO CELLS)),DURATION 294DAYS
     Route: 041
     Dates: start: 20190529, end: 20200318
  6. TRASTUZUMAB [Concomitant]
     Active Substance: TRASTUZUMAB
     Dosage: 357 MG EVERY 21 DAYS, DURATION 43DAYS
     Route: 041
     Dates: start: 20190327, end: 20190509
  7. TRASTUZUMAB [Concomitant]
     Active Substance: TRASTUZUMAB
     Dosage: 510 MG LOADING DOSE, FREQUENCY TIME 1TOTAL, DURATION 1DAYS
     Route: 041
     Dates: start: 20190306, end: 20190306
  8. RAMIPRIL [Concomitant]
     Active Substance: RAMIPRIL
  9. APIXABAN [Concomitant]
     Active Substance: APIXABAN
  10. MACROGOL DISTEARATE [Concomitant]
  11. ZOPICLONE [Concomitant]
     Active Substance: ZOPICLONE
  12. PANTOPRAZOLE [Concomitant]
     Active Substance: PANTOPRAZOLE
  13. LETROZOLE [Concomitant]
     Active Substance: LETROZOLE

REACTIONS (1)
  - Acute myeloid leukaemia [Not Recovered/Not Resolved]

NARRATIVE: CASE EVENT DATE: 20220425
